FAERS Safety Report 9036380 (Version 1)
Quarter: 2013Q1

REPORT INFORMATION
  Report Type: Spontaneous
  Country: US (occurrence: None)
  Receive Date: 20130117
  Receipt Date: 20130117
  Transmission Date: 20140127
  Serious: No
  Sender: FDA-Public Use
  Company Number: None

PATIENT
  Sex: 0

DRUGS (1)
  1. SINGULAIR [Suspect]
     Dates: start: 20120824, end: 201209

REACTIONS (3)
  - Drug ineffective [None]
  - Product substitution issue [None]
  - Dyspnoea [None]
